FAERS Safety Report 13843607 (Version 1)
Quarter: 2017Q3

REPORT INFORMATION
  Report Type: Spontaneous
  Country: US (occurrence: US)
  Receive Date: 20170808
  Receipt Date: 20170808
  Transmission Date: 20171127
  Serious: Yes (Hospitalization)
  Sender: FDA-Public Use
  Company Number: US-VERTEX PHARMACEUTICALS-2017-004098

PATIENT
  Age: 33 Year
  Sex: Male

DRUGS (5)
  1. COMPLETE FORMULATION D3000 [Concomitant]
  2. ORKAMBI [Suspect]
     Active Substance: IVACAFTOR\LUMACAFTOR
     Indication: CYSTIC FIBROSIS
     Dosage: 400/250MG, BID
     Route: 048
     Dates: start: 20150917
  3. COLISTIMETHATE [Concomitant]
     Active Substance: COLISTIMETHATE SODIUM
  4. SODIUM CHLORIDE. [Concomitant]
     Active Substance: SODIUM CHLORIDE
  5. CAYSTON [Concomitant]
     Active Substance: AZTREONAM

REACTIONS (1)
  - Hospitalisation [Unknown]

NARRATIVE: CASE EVENT DATE: 20170716
